FAERS Safety Report 23151877 (Version 1)
Quarter: 2023Q4

REPORT INFORMATION
  Report Type: Spontaneous
  Country: US (occurrence: US)
  Receive Date: 20231107
  Receipt Date: 20231107
  Transmission Date: 20240110
  Serious: No
  Sender: FDA-Public Use
  Company Number: US-AMGEN-USASP2023195955

PATIENT
  Age: 65 Year
  Sex: Male

DRUGS (4)
  1. RITUXIMAB [Suspect]
     Active Substance: RITUXIMAB
     Indication: Immunosuppression
     Dosage: UNK
     Route: 065
     Dates: start: 2022
  2. PREDNISONE [Concomitant]
     Active Substance: PREDNISONE
     Dosage: 1 MILLIGRAM/KG
     Route: 065
     Dates: start: 20220226
  3. Immunoglobulin [Concomitant]
     Indication: Immunosuppression
     Dosage: 0.5 MILLIGRAM/KG
     Route: 042
     Dates: start: 2022
  4. Immunoglobulin [Concomitant]
     Dosage: 1 MILLIGRAM/KG
     Route: 042
     Dates: start: 2022

REACTIONS (2)
  - Constipation [Unknown]
  - Off label use [Unknown]
